FAERS Safety Report 17643692 (Version 2)
Quarter: 2020Q2

REPORT INFORMATION
  Report Type: Spontaneous
  Country: US (occurrence: US)
  Receive Date: 20200408
  Receipt Date: 20200413
  Transmission Date: 20200713
  Serious: Yes (Other)
  Sender: FDA-Public Use
  Company Number: US-BIOGEN-2020BI00858361

PATIENT
  Sex: Male

DRUGS (2)
  1. TECFIDERA [Suspect]
     Active Substance: DIMETHYL FUMARATE
     Indication: MULTIPLE SCLEROSIS
     Route: 048
     Dates: start: 201805
  2. TECFIDERA [Suspect]
     Active Substance: DIMETHYL FUMARATE
     Route: 065
     Dates: start: 20180703

REACTIONS (7)
  - Central nervous system lesion [Unknown]
  - Diplegia [Recovered/Resolved]
  - Fall [Recovered/Resolved]
  - Gait inability [Unknown]
  - Muscular weakness [Recovered/Resolved]
  - Malaise [Unknown]
  - Product dose omission [Unknown]
